FAERS Safety Report 15204853 (Version 1)
Quarter: 2018Q3

REPORT INFORMATION
  Report Type: Spontaneous
  Country: US (occurrence: US)
  Receive Date: 20180726
  Receipt Date: 20180726
  Transmission Date: 20181010
  Serious: Yes (Other)
  Sender: FDA-Public Use
  Company Number: US-SHIRE-US201827283

PATIENT
  Sex: Male

DRUGS (1)
  1. GATTEX [Suspect]
     Active Substance: TEDUGLUTIDE\WATER
     Indication: PRODUCT USED FOR UNKNOWN INDICATION
     Dosage: 3200 IU, UNK
     Route: 065
     Dates: start: 20170620

REACTIONS (4)
  - Pharyngitis [Recovered/Resolved]
  - Fibromyalgia [Not Recovered/Not Resolved]
  - Fungal infection [Recovered/Resolved]
  - Injection site reaction [Not Recovered/Not Resolved]
